FAERS Safety Report 5908631-4 (Version None)
Quarter: 2008Q4

REPORT INFORMATION
  Report Type: 
  Country: None (occurrence: None)
  Receive Date: 20081001
  Receipt Date: 20080917
  Transmission Date: 20090506
  Serious: Yes (Death)
  Sender: FDA-Public Use
  Company Number: A-US2008-22002

PATIENT
  Age: 77 Year
  Sex: Female

DRUGS (1)
  1. TRACLEER [Suspect]
     Indication: DRUG USE FOR UNKNOWN INDICATION
     Dosage: MG,ORAL
     Route: 048

REACTIONS (1)
  - HOSPITALISATION [None]
